FAERS Safety Report 7803541-X (Version None)
Quarter: 2011Q4

REPORT INFORMATION
  Report Type: 
  Country: None (occurrence: None)
  Receive Date: 20111009
  Receipt Date: 20110707
  Transmission Date: 20120403
  Serious: Yes (Hospitalization, Other)
  Sender: FDA-Public Use
  Company Number: PHHO2010US15341

PATIENT
  Sex: Male

DRUGS (19)
  1. LOPRESSOR [Suspect]
  2. FLOMAX [Concomitant]
  3. NIASPAN [Concomitant]
  4. LANTUS [Concomitant]
  5. NORVASC [Concomitant]
  6. ZETIA [Concomitant]
  7. SPIRONOLACTONE [Concomitant]
  8. IRON [Concomitant]
  9. QUINAPRIL [Concomitant]
  10. SYNTHROID [Concomitant]
  11. FUROSEMIDE [Concomitant]
  12. LIPITOR [Concomitant]
  13. COUMADIN [Concomitant]
     Dosage: 5 MG, QD
     Dates: start: 20101019, end: 20110628
  14. PLAVIX [Concomitant]
  15. FERROUS SULFATE TAB [Concomitant]
  16. HUMALOG [Concomitant]
  17. ASPIRIN [Concomitant]
  18. FLUAD [Suspect]
     Indication: IMMUNISATION
     Dosage: .5 ML
     Route: 030
     Dates: start: 20100914, end: 20100914
  19. GLYSET [Concomitant]

REACTIONS (14)
  - DYSPNOEA [None]
  - BLOOD CREATININE INCREASED [None]
  - CARDIAC FAILURE CONGESTIVE [None]
  - FLUID OVERLOAD [None]
  - GASTROINTESTINAL HAEMORRHAGE [None]
  - DIASTOLIC DYSFUNCTION [None]
  - ACUTE PRERENAL FAILURE [None]
  - RENAL FAILURE ACUTE [None]
  - PULMONARY OEDEMA [None]
  - NEPHROSCLEROSIS [None]
  - DIABETIC NEPHROPATHY [None]
  - ATRIAL FIBRILLATION [None]
  - RENAL FAILURE CHRONIC [None]
  - HYPERKALAEMIA [None]
